FAERS Safety Report 7782536-9 (Version None)
Quarter: 2011Q3

REPORT INFORMATION
  Report Type: 
  Country: None (occurrence: None)
  Receive Date: 20110923
  Receipt Date: 20110915
  Transmission Date: 20111222
  Serious: Yes (Hospitalization)
  Sender: FDA-Public Use
  Company Number: 2011SP044064

PATIENT
  Age: 40 Year
  Sex: Female

DRUGS (5)
  1. REMERON [Suspect]
     Indication: SCHIZOPHRENIA
     Dosage: 15 MG;QD; PO  30 MG;QD;PO
     Route: 048
     Dates: start: 20101201
  2. REMERON [Suspect]
     Indication: SCHIZOPHRENIA
     Dosage: 15 MG;QD; PO  30 MG;QD;PO
     Route: 048
     Dates: end: 20110101
  3. ZOLPIDEM [Concomitant]
  4. ABILIFY [Concomitant]
  5. SILECE [Concomitant]

REACTIONS (4)
  - AGGRESSION [None]
  - CONDITION AGGRAVATED [None]
  - ABNORMAL BEHAVIOUR [None]
  - LOOSE ASSOCIATIONS [None]
